FAERS Safety Report 17875518 (Version 6)
Quarter: 2020Q4

REPORT INFORMATION
  Report Type: Spontaneous
  Country: US (occurrence: US)
  Receive Date: 20200609
  Receipt Date: 20201123
  Transmission Date: 20210113
  Serious: No
  Sender: FDA-Public Use
  Company Number: US-JNJFOC-20200608583

PATIENT
  Age: 58 Year
  Sex: Female
  Weight: 61.29 kg

DRUGS (2)
  1. SIMPONI [Suspect]
     Active Substance: GOLIMUMAB
     Route: 058
     Dates: start: 201808
  2. SIMPONI [Suspect]
     Active Substance: GOLIMUMAB
     Indication: PRODUCT USED FOR UNKNOWN INDICATION
     Route: 058
     Dates: start: 202009

REACTIONS (5)
  - Drug delivery system malfunction [Unknown]
  - Product dose omission issue [Unknown]
  - Condition aggravated [Unknown]
  - Accidental exposure to product [Unknown]
  - Product label issue [Unknown]

NARRATIVE: CASE EVENT DATE: 202009
